FAERS Safety Report 4734448-2 (Version None)
Quarter: 2005Q3

REPORT INFORMATION
  Report Type: 
  Country: None (occurrence: None)
  Receive Date: 20050804
  Receipt Date: 20050727
  Transmission Date: 20060218
  Serious: Yes (Hospitalization)
  Sender: FDA-Public Use
  Company Number: US-ROCHE-412254

PATIENT
  Sex: Female
  Weight: 102.1 kg

DRUGS (1)
  1. BONIVA [Suspect]
     Indication: DRUG USE FOR UNKNOWN INDICATION
     Dosage: DOSAGE REGIMEN REPORTED AS EVERY MONTH
     Route: 048

REACTIONS (3)
  - ARRHYTHMIA [None]
  - CHEST PAIN [None]
  - FLUID RETENTION [None]
